FAERS Safety Report 14377638 (Version 1)
Quarter: 2018Q1

REPORT INFORMATION
  Report Type: Report from Study
  Country: CA (occurrence: CA)
  Receive Date: 20180111
  Receipt Date: 20180111
  Transmission Date: 20180509
  Serious: Yes (Death, Hospitalization, Other)
  Sender: FDA-Public Use
  Company Number: PHHY2017CA093322

PATIENT
  Sex: Male

DRUGS (3)
  1. SANDOSTATIN LAR DEPOT [Suspect]
     Active Substance: OCTREOTIDE ACETATE
     Dosage: UNK
     Route: 030
     Dates: start: 20171214
  2. AFINITOR [Suspect]
     Active Substance: EVEROLIMUS
     Indication: PANCREATIC NEUROENDOCRINE TUMOUR
     Dosage: 10 MG, QD
     Route: 048
     Dates: start: 20170126, end: 20170518
  3. SANDOSTATIN LAR DEPOT [Suspect]
     Active Substance: OCTREOTIDE ACETATE
     Indication: CARCINOID TUMOUR
     Dosage: 30 MG, QMO
     Route: 030
     Dates: start: 20170623

REACTIONS (11)
  - Mastication disorder [Unknown]
  - Decreased appetite [Recovering/Resolving]
  - Stomatitis [Unknown]
  - Weight decreased [Unknown]
  - Death [Fatal]
  - Hepatic neoplasm [Unknown]
  - Ammonia increased [Unknown]
  - Agitation [Unknown]
  - Amnesia [Unknown]
  - Confusional state [Unknown]
  - Feeding disorder [Unknown]

NARRATIVE: CASE EVENT DATE: 2017
